FAERS Safety Report 10591438 (Version 2)
Quarter: 2015Q1

REPORT INFORMATION
  Report Type: Spontaneous
  Country: PL (occurrence: PL)
  Receive Date: 20141118
  Receipt Date: 20150109
  Transmission Date: 20150720
  Serious: Yes (Life-Threatening)
  Sender: FDA-Public Use
  Company Number: PL-BAXTER-2014BAX067141

PATIENT
  Age: 55 Year
  Sex: Female
  Weight: 54 kg

DRUGS (8)
  1. PROTHROMPLEX NF [Suspect]
     Active Substance: ANTITHROMBIN III HUMAN\COAGULATION FACTOR IX HUMAN\COAGULATION FACTOR VII HUMAN\COAGULATION FACTOR X HUMAN\PROTEIN C\PROTEIN S HUMAN\PROTHROMBIN
     Route: 042
     Dates: start: 20140707, end: 20140710
  2. ENDOXAN [Suspect]
     Active Substance: CYCLOPHOSPHAMIDE
     Indication: OFF LABEL USE
  3. ENDOXAN [Suspect]
     Active Substance: CYCLOPHOSPHAMIDE
     Indication: COAGULOPATHY
     Route: 065
     Dates: start: 20140707
  4. ENCORTON [Suspect]
     Active Substance: PREDNISONE
     Indication: COAGULOPATHY
     Route: 048
     Dates: start: 20140707
  5. TRAMAL RETARD [Concomitant]
     Active Substance: TRAMADOL
     Indication: PRODUCT USED FOR UNKNOWN INDICATION
     Route: 048
  6. OXAZEPAM GSK [Concomitant]
     Indication: PRODUCT USED FOR UNKNOWN INDICATION
     Route: 048
  7. PROTHROMPLEX NF [Suspect]
     Active Substance: ANTITHROMBIN III HUMAN\COAGULATION FACTOR IX HUMAN\COAGULATION FACTOR VII HUMAN\COAGULATION FACTOR X HUMAN\PROTEIN C\PROTEIN S HUMAN\PROTHROMBIN
     Indication: COAGULOPATHY
     Route: 042
     Dates: start: 20130724
  8. BERIPLEX HS [Suspect]
     Active Substance: COAGULATION FACTOR IX HUMAN\COAGULATION FACTOR VII HUMAN\COAGULATION FACTOR X HUMAN\PROTEIN C\PROTEIN S HUMAN\PROTHROMBIN
     Indication: COAGULOPATHY
     Route: 065

REACTIONS (4)
  - Chills [Recovering/Resolving]
  - Pallor [Recovering/Resolving]
  - Heart rate increased [Recovering/Resolving]
  - Blood pressure decreased [Recovering/Resolving]

NARRATIVE: CASE EVENT DATE: 20140710
